FAERS Safety Report 24732054 (Version 3)
Quarter: 2025Q1

REPORT INFORMATION
  Report Type: Spontaneous
  Country: US (occurrence: US)
  Receive Date: 20241213
  Receipt Date: 20250227
  Transmission Date: 20250409
  Serious: No
  Sender: PFIZER
  Company Number: US-PFIZER INC-202400322037

PATIENT
  Age: 9 Year
  Sex: Female
  Weight: 23.583 kg

DRUGS (1)
  1. GENOTROPIN [Suspect]
     Active Substance: SOMATROPIN

REACTIONS (5)
  - Drug dose omission by device [Unknown]
  - Device power source issue [Unknown]
  - Device leakage [Unknown]
  - Device issue [Unknown]
  - Wrong technique in device usage process [Unknown]

NARRATIVE: CASE EVENT DATE: 20241201
